FAERS Safety Report 20408073 (Version 1)
Quarter: 2022Q1

REPORT INFORMATION
  Report Type: Spontaneous
  Country: None (occurrence: ES)
  Receive Date: 20220201
  Receipt Date: 20220201
  Transmission Date: 20220423
  Serious: Yes (Other)
  Sender: FDA-Public Use
  Company Number: ES-Oxford Pharmaceuticals, LLC-2124484

PATIENT
  Sex: Male

DRUGS (2)
  1. SPIRONOLACTONE [Suspect]
     Active Substance: SPIRONOLACTONE
     Indication: Cardiovascular disorder
  2. ABIRATERONE. [Suspect]
     Active Substance: ABIRATERONE ACETATE

REACTIONS (2)
  - Neoplasm progression [Unknown]
  - Drug interaction [Unknown]
